FAERS Safety Report 5864891-X (Version None)
Quarter: 2008Q3

REPORT INFORMATION
  Report Type: 
  Country: None (occurrence: None)
  Receive Date: 20080829
  Receipt Date: 20080722
  Transmission Date: 20090109
  Serious: No
  Sender: FDA-Public Use
  Company Number: US-ABBOTT-08P-163-0465147-00

PATIENT
  Sex: Male
  Weight: 109 kg

DRUGS (4)
  1. SIMCOR [Suspect]
     Indication: DYSLIPIDAEMIA
     Dosage: 1000/20MG AT BEDTIME
     Route: 048
     Dates: start: 20080615
  2. GENERIC ZANTAC [Concomitant]
     Indication: DYSPEPSIA
     Route: 048
  3. NAPROXEN SODIUM [Concomitant]
     Indication: HEADACHE
     Route: 048
  4. IBUPROFEN [Concomitant]
     Indication: PROPHYLAXIS
     Route: 048

REACTIONS (2)
  - FLUSHING [None]
  - HEADACHE [None]
